FAERS Safety Report 16318386 (Version 1)
Quarter: 2019Q2

REPORT INFORMATION
  Report Type: Spontaneous
  Country: US (occurrence: US)
  Receive Date: 20190410
  Receipt Date: 20190410
  Transmission Date: 20190711
  Serious: Yes (Hospitalization)
  Sender: FDA-Public Use
  Company Number: None

PATIENT
  Age: 45 Year
  Sex: Female

DRUGS (7)
  1. PULMOZYME [Suspect]
     Active Substance: DORNASE ALFA
     Indication: CYSTIC FIBROSIS
     Route: 055
     Dates: start: 20131213
  2. TOBRAMYCIN. [Concomitant]
     Active Substance: TOBRAMYCIN
  3. SOD CHL [Concomitant]
  4. IPTRATROPIUM/ALBUT [Concomitant]
  5. OMEPRAZOLE. [Concomitant]
     Active Substance: OMEPRAZOLE
  6. COLISTIMETHATE [Concomitant]
     Active Substance: COLISTIMETHATE SODIUM
  7. ZENPEP [Concomitant]
     Active Substance: PANCRELIPASE AMYLASE\PANCRELIPASE LIPASE\PANCRELIPASE PROTEASE

REACTIONS (2)
  - Physical examination [None]
  - Malaise [None]

NARRATIVE: CASE EVENT DATE: 20190406
